FAERS Safety Report 8772345 (Version 4)
Quarter: 2013Q1

REPORT INFORMATION
  Report Type: Spontaneous
  Country: US (occurrence: US)
  Receive Date: 20120906
  Receipt Date: 20130110
  Transmission Date: 20140127
  Serious: No
  Sender: FDA-Public Use
  Company Number: US-009507513-1208USA011691

PATIENT
  Age: 23 Year
  Sex: Female

DRUGS (3)
  1. NEXPLANON [Suspect]
     Indication: CONTRACEPTION
     Dosage: 1 DF, 3 YEARS
     Route: 059
     Dates: start: 20120822, end: 20120822
  2. NEXPLANON [Suspect]
     Dosage: 1 DF, UNK
     Route: 059
     Dates: start: 20120822
  3. HORMONAL CONTRACEPTIVES (UNSPECIFIED) [Concomitant]

REACTIONS (3)
  - Excoriation [Recovering/Resolving]
  - Complication of device insertion [Unknown]
  - Laceration [Unknown]
